FAERS Safety Report 25187466 (Version 1)
Quarter: 2025Q2

REPORT INFORMATION
  Report Type: Spontaneous
  Country: ES (occurrence: ES)
  Receive Date: 20250411
  Receipt Date: 20250411
  Transmission Date: 20250717
  Serious: Yes (Hospitalization)
  Sender: TEVA
  Company Number: None

PATIENT
  Age: 21 Year
  Sex: Female
  Weight: 127 kg

DRUGS (2)
  1. DESMOPRESSIN [Suspect]
     Active Substance: DESMOPRESSIN
     Indication: Craniopharyngioma
     Dosage: DESMOPRESINA (3746A)
     Route: 060
     Dates: start: 20250204, end: 20250305
  2. HYDROCORTISONE [Suspect]
     Active Substance: HYDROCORTISONE
     Indication: Craniopharyngioma
     Dosage: HIDROCORTISONA (54A)
     Route: 048
     Dates: start: 20250121, end: 20250221

REACTIONS (2)
  - Generalised oedema [Recovering/Resolving]
  - Weight increased [Recovering/Resolving]

NARRATIVE: CASE EVENT DATE: 20250214
